FAERS Safety Report 9255044 (Version 4)
Quarter: 2014Q1

REPORT INFORMATION
  Report Type: Spontaneous
  Country: US (occurrence: US)
  Receive Date: 20130425
  Receipt Date: 20140219
  Transmission Date: 20141002
  Serious: Yes (Death, Hospitalization, Other)
  Sender: FDA-Public Use
  Company Number: US-ASTRAZENECA-2013SE27497

PATIENT
  Age: 82 Year
  Sex: Male
  Weight: 71.2 kg

DRUGS (46)
  1. NEXIUM [Suspect]
     Indication: ABDOMINAL PAIN UPPER
     Dosage: ONCE A DAY
     Route: 048
     Dates: start: 200402, end: 201011
  2. NEXIUM [Suspect]
     Indication: GASTROOESOPHAGEAL REFLUX DISEASE
     Dosage: ONCE A DAY
     Route: 048
     Dates: start: 200402, end: 201011
  3. NEXIUM [Suspect]
     Indication: ABDOMINAL PAIN UPPER
     Route: 048
     Dates: start: 20040219
  4. NEXIUM [Suspect]
     Indication: GASTROOESOPHAGEAL REFLUX DISEASE
     Route: 048
     Dates: start: 20040219
  5. NEXIUM [Suspect]
     Indication: ABDOMINAL PAIN UPPER
     Route: 048
     Dates: start: 20040219, end: 201011
  6. NEXIUM [Suspect]
     Indication: GASTROOESOPHAGEAL REFLUX DISEASE
     Route: 048
     Dates: start: 20040219, end: 201011
  7. NEXIUM [Suspect]
     Indication: ABDOMINAL PAIN UPPER
     Route: 048
     Dates: start: 20061112
  8. NEXIUM [Suspect]
     Indication: GASTROOESOPHAGEAL REFLUX DISEASE
     Route: 048
     Dates: start: 20061112
  9. NEXIUM [Suspect]
     Indication: ABDOMINAL PAIN UPPER
     Route: 048
     Dates: start: 20101007
  10. NEXIUM [Suspect]
     Indication: GASTROOESOPHAGEAL REFLUX DISEASE
     Route: 048
     Dates: start: 20101007
  11. PRILOSEC [Suspect]
     Route: 048
  12. PROTONIX [Concomitant]
     Indication: GASTRIC DISORDER
     Dates: start: 20110505, end: 2013
  13. PROTONIX [Concomitant]
     Indication: GASTROOESOPHAGEAL REFLUX DISEASE
     Dates: start: 20110505, end: 2013
  14. TUMS [Concomitant]
  15. MILK OF MAGNESIA [Concomitant]
  16. MYLANTA [Concomitant]
  17. PEPTO BISTROL [Concomitant]
  18. INDERAL [Concomitant]
     Indication: BLOOD PRESSURE ABNORMAL
     Dates: start: 20040108
  19. LASIX [Concomitant]
     Indication: FLUID IMBALANCE
     Dates: start: 20050627
  20. FLOMAX [Concomitant]
     Indication: PROSTATIC DISORDER
     Dates: start: 20040917
  21. FAMOTIDINE [Concomitant]
     Indication: GASTRIC DISORDER
     Dates: start: 20101122, end: 2013
  22. FAMOTIDINE [Concomitant]
     Indication: GASTROOESOPHAGEAL REFLUX DISEASE
     Dates: start: 20101122, end: 2013
  23. SINGULAIR [Concomitant]
     Indication: HYPERSENSITIVITY
     Dates: start: 20030710
  24. SINGULAIR [Concomitant]
     Indication: CARDIOVASCULAR DISORDER
     Dates: start: 20030710
  25. XANAX [Concomitant]
     Indication: ANXIETY
  26. XANAX [Concomitant]
     Indication: PROSTATIC DISORDER
  27. NIFEDIPINE [Concomitant]
     Dates: start: 20030410
  28. PREDNISONE [Concomitant]
     Dates: start: 20040325
  29. CLONAZEPAM [Concomitant]
     Dates: start: 20050419
  30. PLAVIX [Concomitant]
     Dates: start: 20110120
  31. SEVERAL VITAMINS [Concomitant]
     Dates: start: 200410
  32. CIPRO [Concomitant]
     Route: 048
     Dates: start: 200611
  33. PROSTAT [Concomitant]
     Dates: start: 200611
  34. SPIRONOLACTONE/HYDROCHLOROTHIAZIDE [Concomitant]
     Dosage: 25/25 MG, DAILY
     Dates: start: 200611
  35. PREVACID [Concomitant]
     Indication: GASTROOESOPHAGEAL REFLUX DISEASE
     Dosage: PRIOR TO 2004
  36. PREVACID [Concomitant]
     Indication: GASTROOESOPHAGEAL REFLUX DISEASE
     Dates: start: 200611
  37. LEVOFLOXACIN [Concomitant]
     Dates: start: 20061115
  38. ACETAMINOPHEN [Concomitant]
     Indication: PAIN
     Dates: start: 20061115
  39. PAXIL [Concomitant]
     Dates: start: 200704
  40. MELOXICAM [Concomitant]
     Dates: start: 20070425
  41. TRAMADOL HCL [Concomitant]
     Indication: PAIN
     Dates: start: 20070425
  42. FINASTERIDE [Concomitant]
     Dates: start: 20070425
  43. LORCET [Concomitant]
     Dosage: 10/650 MG
     Route: 048
     Dates: start: 20130210
  44. PLETAL [Concomitant]
     Route: 048
     Dates: start: 20130215
  45. SIMETHICONE [Concomitant]
     Route: 048
     Dates: start: 20130214
  46. MEGESTROL [Concomitant]
     Route: 048
     Dates: start: 20130312

REACTIONS (21)
  - Death [Fatal]
  - Hip fracture [Unknown]
  - Gastrointestinal disorder [Unknown]
  - Pneumonia [Unknown]
  - Lung neoplasm malignant [Unknown]
  - Bone cancer [Unknown]
  - Cerebrovascular accident [Unknown]
  - Femur fracture [Unknown]
  - Fall [Unknown]
  - Chronic obstructive pulmonary disease [Unknown]
  - Osteoporosis [Unknown]
  - Bone disorder [Unknown]
  - Multiple fractures [Unknown]
  - Angina pectoris [Unknown]
  - Arthritis [Unknown]
  - Peripheral arterial occlusive disease [Unknown]
  - Rheumatoid arthritis [Unknown]
  - Androgen deficiency [Unknown]
  - Osteoarthritis [Unknown]
  - Hypertension [Unknown]
  - Major depression [Unknown]
